FAERS Safety Report 15788238 (Version 3)
Quarter: 2019Q1

REPORT INFORMATION
  Report Type: Spontaneous
  Country: US (occurrence: US)
  Receive Date: 20190104
  Receipt Date: 20190211
  Transmission Date: 20190417
  Serious: No
  Sender: FDA-Public Use
  Company Number: US-B.I. PHARMACEUTICALS,INC./RIDGEFIELD-2019-BI-000336

PATIENT
  Sex: Female

DRUGS (1)
  1. COMBIVENT [Suspect]
     Active Substance: ALBUTEROL SULFATE\IPRATROPIUM BROMIDE
     Indication: BRONCHITIS CHRONIC
     Dosage: 4-6 INHALATIONS A DAY; FORM STRENGTH: 20 MCG / 100 MCG;  INHALATION SPRAY  DOSE NOT CHANGED
     Route: 055
     Dates: start: 2017

REACTIONS (3)
  - Off label use [Unknown]
  - Extra dose administered [Unknown]
  - Product quality issue [Unknown]
